FAERS Safety Report 5226684-6 (Version None)
Quarter: 2007Q1

REPORT INFORMATION
  Report Type: 
  Country: None (occurrence: None)
  Receive Date: 20070201
  Receipt Date: 20070119
  Transmission Date: 20070707
  Serious: Yes (Death, Hospitalization, Other)
  Sender: FDA-Public Use
  Company Number: CH-ELI_LILLY_AND_COMPANY-CH200701003693

PATIENT
  Age: 72 Year
  Sex: Female

DRUGS (18)
  1. FLUCTINE [Suspect]
     Indication: DEPRESSION
     Dosage: 20 MG, DAILY (1/D)
     Route: 048
     Dates: start: 20030101, end: 20061226
  2. TRAMAL - SLOW RELEASE [Interacting]
     Indication: PAIN
     Dosage: 150 MG, 2/D
     Route: 048
     Dates: start: 20061223, end: 20061226
  3. TRAMAL - SLOW RELEASE [Interacting]
     Dosage: 100 MG, 2/D
     Dates: start: 20061221, end: 20061221
  4. TRAMAL - SLOW RELEASE [Interacting]
     Dosage: 100 MG, DAILY (1/D)
     Route: 048
  5. TRAMAL - SLOW RELEASE [Interacting]
     Dosage: 37.5 MG, 4/D
     Route: 048
  6. DAFALGAN /FRA/ [Concomitant]
     Dosage: 1 G, 4/D
     Route: 048
  7. ASPIRIN [Concomitant]
     Dosage: UNK , DAILY (1/D)
     Route: 048
  8. PLAVIX /UNK/ [Concomitant]
     Dosage: 75 MG, DAILY (1/D)
     Route: 048
  9. SORTIS ^GOEDECKE^ [Concomitant]
     Dosage: 20 MG, DAILY (1/D)
     Route: 048
  10. BELOC ZOK [Concomitant]
     Dosage: 75 MG, DAILY (1/D)
     Route: 048
  11. COSAAR                                  /GFR/ [Concomitant]
     Dosage: 50 MG, DAILY (1/D)
  12. LASIX [Concomitant]
     Dosage: 20 MG, 2/D
  13. ALDACTONE [Concomitant]
     Dosage: 50 MG, DAILY (1/D)
     Route: 048
  14. PHYSIOTENS ^GIULINI^ [Concomitant]
     Dosage: 0.2 MG, DAILY (1/D)
  15. CORVATON ^AVENTIS PHARMA^ [Concomitant]
     Dosage: 8 MG, DAILY (1/D)
  16. NEXIUM [Concomitant]
     Dosage: 40 MG, DAILY (1/D)
  17. INSULIN [Concomitant]
  18. CLEXANE [Concomitant]
     Dosage: 60 MG, 2/D

REACTIONS (12)
  - ACUTE MYOCARDIAL INFARCTION [None]
  - ARTERIAL INSUFFICIENCY [None]
  - BRADYCARDIA [None]
  - CARDIO-RESPIRATORY ARREST [None]
  - DRUG INTERACTION [None]
  - HYPERKALAEMIA [None]
  - HYPOTENSION [None]
  - LOCALISED INFECTION [None]
  - RENAL FAILURE ACUTE [None]
  - SUDDEN DEATH [None]
  - URINARY TRACT INFECTION [None]
  - VENTRICULAR FIBRILLATION [None]
